FAERS Safety Report 6297989-5 (Version None)
Quarter: 2009Q3

REPORT INFORMATION
  Report Type: 
  Country: None (occurrence: None)
  Receive Date: 20090805
  Receipt Date: 20090729
  Transmission Date: 20100115
  Serious: Yes (Hospitalization)
  Sender: FDA-Public Use
  Company Number: B0586245A

PATIENT
  Sex: Female

DRUGS (4)
  1. AUGMENTIN '125' [Suspect]
     Indication: TOOTHACHE
     Dosage: 2TAB TWICE PER DAY
     Route: 048
     Dates: start: 20080122
  2. DIALGIREX [Suspect]
     Indication: TOOTHACHE
     Dosage: 2TAB THREE TIMES PER DAY
     Route: 048
     Dates: start: 20080122, end: 20080128
  3. DOLIPRANE [Suspect]
     Indication: TOOTHACHE
     Dosage: 1G SINGLE DOSE
     Route: 048
     Dates: start: 20080128, end: 20080128
  4. PRAZOSIN HCL [Concomitant]
     Route: 065

REACTIONS (2)
  - MALAISE [None]
  - VERTIGO [None]
